FAERS Safety Report 4466113-3 (Version None)
Quarter: 2004Q3

REPORT INFORMATION
  Report Type: 
  Country: None (occurrence: None)
  Receive Date: 20040930
  Receipt Date: 20040915
  Transmission Date: 20050211
  Serious: Yes (Hospitalization)
  Sender: FDA-Public Use
  Company Number: 2004233938FI

PATIENT
  Age: 84 Year
  Sex: Female

DRUGS (10)
  1. SULFASALAZINE [Suspect]
     Indication: DIARRHOEA
     Dosage: 500 MG, TID, ORAL
     Route: 048
     Dates: start: 20040701, end: 20040820
  2. DIGOXIN [Concomitant]
  3. PRIMASPAN [Concomitant]
  4. GALANTAMINE (GALANTAMINE) [Concomitant]
  5. KALINORM [Concomitant]
  6. DIUREX [Concomitant]
  7. THYROXIN (LEVOTHYROXINE SODIUM) [Concomitant]
  8. CELECOXIB [Concomitant]
  9. METRONIDAZOLE [Concomitant]
  10. PARATABS [Concomitant]

REACTIONS (11)
  - AGRANULOCYTOSIS [None]
  - C-REACTIVE PROTEIN INCREASED [None]
  - DIARRHOEA [None]
  - FATIGUE [None]
  - GENERAL PHYSICAL HEALTH DETERIORATION [None]
  - HAEMOGLOBIN ABNORMAL [None]
  - HYPONATRAEMIA [None]
  - IMMUNOSUPPRESSION [None]
  - LEUKOPENIA [None]
  - LYMPHOCYTOSIS [None]
  - PYREXIA [None]
